FAERS Safety Report 8140850-1 (Version None)
Quarter: 2012Q1

REPORT INFORMATION
  Report Type: 
  Country: None (occurrence: None)
  Receive Date: 20120216
  Receipt Date: 20120209
  Transmission Date: 20120608
  Serious: Yes (Hospitalization)
  Sender: FDA-Public Use
  Company Number: FR-BAYER-2012-013871

PATIENT
  Age: 57 Year
  Sex: Male

DRUGS (16)
  1. TRIMEBUTINE [Concomitant]
     Indication: DIARRHOEA
     Dosage: 3 CAPSULE( 1 CAPSULE, 3 IN 1 DAY)
     Dates: start: 20101030, end: 20101201
  2. POTASSIUM CHLORIDE [Concomitant]
     Indication: HYPOKALAEMIA
     Dosage: 600 MG, TID
     Dates: start: 20111116
  3. LOPERAMIDE HCL [Concomitant]
     Indication: DIARRHOEA
     Dosage: 10 MG, PRN
     Dates: start: 20100527
  4. SMECTA [AL+ HYDROX-MGCO3 GEL,AL+ MG+ SILIC,GLUCOSE MONOHYDR,GLYCYR [Concomitant]
     Indication: DIARRHOEA
     Dosage: 3 SACHET (1 SACHET , 3 IN 1 DAY)
     Dates: start: 20101030, end: 20110912
  5. ULTRACET [Concomitant]
     Indication: BACK PAIN
     Dosage: 37.5 MG, TID
     Dates: start: 20111114
  6. ESOMEPRAZOLE MAGNESIUM [Concomitant]
     Indication: GASTRIC DISORDER
     Dosage: 40 MG, QD
     Dates: start: 20100527
  7. DIAZEPAM [Concomitant]
     Indication: DEPRESSION
     Dosage: 10 MG, PRN
     Dates: start: 19800101
  8. DOXYCYCLINE HCL [Concomitant]
     Indication: RASH PAPULAR
     Dosage: 100 MG, 1 IN 1 DAY
     Dates: start: 20100819, end: 20101115
  9. CALCIUM CARBONATE [Concomitant]
     Indication: HYPOCALCAEMIA
     Dosage: 1000 MG (1000 MG, 1 IN 1 DAY)
     Dates: start: 20110804
  10. SORAFENIB (RAF KINASE INHIBITOR) [Suspect]
     Indication: HEPATIC NEOPLASM MALIGNANT
     Dosage: 400 MG, BID
     Route: 048
     Dates: start: 20100617
  11. DEXERYL [GLYCEROL,PARAFFIN, LIQUID,WHITE SOFT PARAFFIN] [Concomitant]
     Indication: ERYTHEMA
     Dosage: 2 IN 1 DAY
     Dates: start: 20100624, end: 20100801
  12. BETNESOL [BETAMETHASONE SODIUM PHOSPHATE] [Concomitant]
     Indication: ERYTHEMA
     Dosage: UNK, PRN
     Dates: start: 20100804, end: 20101115
  13. MAGNESIUM PIDOLATE [Concomitant]
     Indication: HYPOMAGNESAEMIA
     Dosage: 2 IN 1 DAY
     Dates: start: 20110531, end: 20120103
  14. RACECADOTRIL [Concomitant]
     Indication: DIARRHOEA
     Dosage: 2 CAPSULE( 1 CAPSULE, 2 IN 1 DAY)
     Dates: start: 20101030, end: 20101201
  15. FORTIMEL [Concomitant]
     Indication: WEIGHT DECREASED
     Dosage: 300 KCAL (2 IN 1 DAY)
     Dates: start: 20110401, end: 20110510
  16. COLECALCIFEROL [Concomitant]
     Indication: VITAMIN D DEFICIENCY
     Dosage: 1 IN 1 MONTH
     Dates: start: 20110913

REACTIONS (1)
  - HYPOMAGNESAEMIA [None]
